FAERS Safety Report 25625258 (Version 1)
Quarter: 2025Q3

REPORT INFORMATION
  Report Type: Spontaneous
  Country: US (occurrence: US)
  Receive Date: 20250731
  Receipt Date: 20250731
  Transmission Date: 20251020
  Serious: Yes (Hospitalization)
  Sender: TEVA
  Company Number: US-TEVA-VS-3354546

PATIENT

DRUGS (2)
  1. QUETIAPINE [Suspect]
     Active Substance: QUETIAPINE
     Indication: Product used for unknown indication
     Route: 048
  2. RIVASTIGMINE [Suspect]
     Active Substance: RIVASTIGMINE
     Indication: Toxicity to various agents
     Route: 062

REACTIONS (5)
  - Toxicity to various agents [Unknown]
  - Dry mouth [Recovered/Resolved]
  - Intentional overdose [Unknown]
  - Off label use [Unknown]
  - Delirium [Recovered/Resolved]
